FAERS Safety Report 24417098 (Version 1)
Quarter: 2024Q4

REPORT INFORMATION
  Report Type: Spontaneous
  Country: US (occurrence: US)
  Receive Date: 20241009
  Receipt Date: 20241009
  Transmission Date: 20250114
  Serious: No
  Sender: CB FLEET
  Company Number: US-PRESTIGE-202406-US-001937

PATIENT
  Age: 81 Year
  Sex: Female

DRUGS (2)
  1. MICONAZOLE NITRATE [Suspect]
     Active Substance: MICONAZOLE NITRATE
     Indication: Fungal infection
     Dosage: USED M1 3 DAYS AGO.
     Route: 067
  2. ELIQUIS [Concomitant]
     Active Substance: APIXABAN

REACTIONS (1)
  - Haemorrhoidal haemorrhage [Recovered/Resolved]
